FAERS Safety Report 7035414-7 (Version None)
Quarter: 2010Q4

REPORT INFORMATION
  Report Type: 
  Country: None (occurrence: None)
  Receive Date: 20101008
  Receipt Date: 20101005
  Transmission Date: 20110411
  Serious: Yes (Other)
  Sender: FDA-Public Use
  Company Number: BR-PFIZER INC-2010121476

PATIENT
  Age: 25 Year
  Sex: Male
  Weight: 90 kg

DRUGS (5)
  1. XALATAN [Suspect]
     Indication: GLAUCOMA
     Dosage: 1GTT EACH EYE, 1X/DAY
     Route: 047
     Dates: start: 20090101
  2. TIMOLOL MALEATE [Concomitant]
     Indication: GLAUCOMA
     Dosage: 1 DROP IN EACH EYE EVERY 12 HOUR
     Route: 047
  3. LOSARTAN [Concomitant]
     Indication: HYPERTENSION
     Dosage: 50 MG, 2X/DAY, EVEREY 12 HOURS
     Route: 048
     Dates: start: 20090101
  4. ATENSINA [Concomitant]
     Indication: HYPERTENSION
     Dosage: 100 MG, 2X/DAY, EVERY 12 HOURS
     Route: 048
     Dates: start: 20090101
  5. HYDROCHLOROTHIAZIDE [Concomitant]
     Indication: HYPERTENSION
     Dosage: 25 MG, 1X/DAY, IN THE MORNING
     Route: 048

REACTIONS (6)
  - ARRHYTHMIA [None]
  - DRUG DISPENSING ERROR [None]
  - HEADACHE [None]
  - HYPERTENSION [None]
  - INTERCEPTED DRUG DISPENSING ERROR [None]
  - OCULAR HYPERAEMIA [None]
